FAERS Safety Report 16944722 (Version 1)
Quarter: 2019Q4

REPORT INFORMATION
  Report Type: Spontaneous
  Country: US (occurrence: US)
  Receive Date: 20191022
  Receipt Date: 20191022
  Transmission Date: 20200122
  Serious: Yes (Other)
  Sender: FDA-Public Use
  Company Number: US-PFIZER INC-2019456403

PATIENT
  Age: 60 Year
  Sex: Male

DRUGS (3)
  1. CIALIS [Suspect]
     Active Substance: TADALAFIL
     Indication: ERECTILE DYSFUNCTION
     Dosage: 2.5MG, 5MG, + 20MG, ONCE OR TWICE PER WEEK
     Dates: start: 20060718, end: 20141110
  2. LEVITRA [Concomitant]
     Active Substance: VARDENAFIL HYDROCHLORIDE
     Indication: ERECTILE DYSFUNCTION
     Dosage: 20 MG, UNK
     Dates: start: 20090806
  3. VIAGRA [Suspect]
     Active Substance: SILDENAFIL CITRATE
     Indication: ERECTILE DYSFUNCTION
     Dosage: UNK
     Dates: start: 2006, end: 2014

REACTIONS (2)
  - Choroid melanoma [Unknown]
  - Malignant melanoma [Unknown]

NARRATIVE: CASE EVENT DATE: 201210
